FAERS Safety Report 8861642 (Version 1)
Quarter: 2012Q4

REPORT INFORMATION
  Report Type: Spontaneous
  Country: US (occurrence: None)
  Receive Date: 20121025
  Receipt Date: 20121025
  Transmission Date: 20130627
  Serious: Yes (Hospitalization, Other)
  Sender: FDA-Public Use
  Company Number: None

PATIENT
  Age: 64 Year
  Sex: Male

DRUGS (1)
  1. WARFARIN [Suspect]
     Dosage: 7.5 MT TU, TH 5 MG S
     Dates: start: 20110801, end: 20120602

REACTIONS (3)
  - Mouth haemorrhage [None]
  - Epistaxis [None]
  - Haemorrhagic anaemia [None]
